FAERS Safety Report 6438624-2 (Version None)
Quarter: 2009Q4

REPORT INFORMATION
  Report Type: 
  Country: None (occurrence: None)
  Receive Date: 20091110
  Receipt Date: 20091026
  Transmission Date: 20100525
  Serious: Yes (Hospitalization)
  Sender: FDA-Public Use
  Company Number: 2009AC000346

PATIENT
  Age: 77 Year
  Sex: Male

DRUGS (30)
  1. DIGOXIN [Suspect]
     Dosage: .125 MG; QD; PO
     Route: 048
     Dates: start: 20050721, end: 20080721
  2. COREG [Concomitant]
  3. PROPOXYPHENE HCL CAP [Concomitant]
  4. WARFARIN SODIUM [Concomitant]
  5. FUROSEMIDE [Concomitant]
  6. TORSEMIDE [Concomitant]
  7. JANTOVEN [Concomitant]
  8. METOPROLOL TARTRATE [Concomitant]
  9. LISINOPRIL [Concomitant]
  10. ASPIRIN [Concomitant]
  11. ZOCOR [Concomitant]
  12. ALBUTEROL [Concomitant]
  13. SYNTHROID [Concomitant]
  14. PROTONIX [Concomitant]
  15. K-DUR [Concomitant]
  16. PRINIVIL [Concomitant]
  17. PRILOSEC [Concomitant]
  18. DUONEB [Concomitant]
  19. FERROUS SULFATE TAB [Concomitant]
  20. PREDNISONE [Concomitant]
  21. ALDACTONE [Concomitant]
  22. FLORINEF [Concomitant]
  23. TESSALON [Concomitant]
  24. NIFEREX FORTE [Concomitant]
  25. NIFEREX [Concomitant]
  26. COUMADIN [Concomitant]
  27. PROTONIX [Concomitant]
  28. ALLOPURINOL [Concomitant]
  29. ZOCOR [Concomitant]
  30. NEBULIZER [Concomitant]

REACTIONS (42)
  - ANXIETY [None]
  - AORTIC VALVE INCOMPETENCE [None]
  - APPENDICITIS [None]
  - ASTHENIA [None]
  - ATELECTASIS [None]
  - ATRIAL FIBRILLATION [None]
  - BRONCHITIS [None]
  - BUNDLE BRANCH BLOCK LEFT [None]
  - CAROTID ARTERY STENOSIS [None]
  - CHEST PAIN [None]
  - CHILLS [None]
  - CHOLELITHIASIS [None]
  - CONDUCTION DISORDER [None]
  - DILATATION ATRIAL [None]
  - DIZZINESS [None]
  - DYSPNOEA [None]
  - ECONOMIC PROBLEM [None]
  - EJECTION FRACTION DECREASED [None]
  - FALL [None]
  - FATIGUE [None]
  - GOUT [None]
  - HAEMOGLOBIN DECREASED [None]
  - HEART RATE INCREASED [None]
  - HERPES ZOSTER [None]
  - HYDROPNEUMOTHORAX [None]
  - HYPOAESTHESIA [None]
  - HYPOKALAEMIA [None]
  - HYPOTENSION [None]
  - IMPLANTABLE DEFIBRILLATOR INSERTION [None]
  - INJURY [None]
  - ISCHAEMIC CARDIOMYOPATHY [None]
  - MALAISE [None]
  - MITRAL VALVE INCOMPETENCE [None]
  - OESOPHAGEAL ULCER HAEMORRHAGE [None]
  - PLEURAL EFFUSION [None]
  - PNEUMONIA [None]
  - PYREXIA [None]
  - RENAL FAILURE CHRONIC [None]
  - RESPIRATORY DISTRESS [None]
  - RESPIRATORY SYNCYTIAL VIRUS TEST POSITIVE [None]
  - TRICUSPID VALVE INCOMPETENCE [None]
  - TYPE 2 DIABETES MELLITUS [None]
